FAERS Safety Report 10646781 (Version 2)
Quarter: 2014Q4

REPORT INFORMATION
  Report Type: Spontaneous
  Country: BR (occurrence: BR)
  Receive Date: 20141211
  Receipt Date: 20141211
  Transmission Date: 20150529
  Serious: Yes (Other)
  Sender: FDA-Public Use
  Company Number: PHHY2014BR153567

PATIENT
  Sex: Male

DRUGS (3)
  1. DEPOSTERON [Concomitant]
     Indication: HORMONE REPLACEMENT THERAPY
     Dosage: MONTHLY OR EVERY 20 DAYS
  2. SANDOSTATIN LAR DEPOT [Suspect]
     Active Substance: OCTREOTIDE ACETATE
     Indication: PITUITARY TUMOUR BENIGN
     Dosage: 1 DF, QMO
     Route: 030
  3. PREDNISONE. [Concomitant]
     Active Substance: PREDNISONE
     Indication: ADRENOCORTICOTROPIC HORMONE DEFICIENCY
     Route: 065

REACTIONS (2)
  - Genital candidiasis [Recovered/Resolved]
  - Diabetes mellitus [Recovered/Resolved]
